FAERS Safety Report 8207665-7 (Version None)
Quarter: 2012Q1

REPORT INFORMATION
  Report Type: 
  Country: None (occurrence: None)
  Receive Date: 20120314
  Receipt Date: 20120309
  Transmission Date: 20120608
  Serious: Yes (Death, Hospitalization)
  Sender: FDA-Public Use
  Company Number: NL-GENZYME-CLOF-1002068

PATIENT
  Sex: Female
  Weight: 80 kg

DRUGS (3)
  1. IDARUBICIN HCL [Suspect]
     Indication: ACUTE MYELOID LEUKAEMIA
     Dosage: 23.3 MG, UNK
     Route: 042
     Dates: start: 20120306
  2. CYTARABINE [Suspect]
     Indication: ACUTE MYELOID LEUKAEMIA
     Dosage: 384 MG, UNK
     Route: 042
     Dates: start: 20120306
  3. EVOLTRA [Suspect]
     Indication: ACUTE MYELOID LEUKAEMIA
     Dosage: 19.4 MG, UNK
     Route: 042
     Dates: start: 20120305, end: 20120305

REACTIONS (3)
  - SEPTIC SHOCK [None]
  - MULTI-ORGAN FAILURE [None]
  - TUMOUR LYSIS SYNDROME [None]
